FAERS Safety Report 6842255-X (Version None)
Quarter: 2010Q3

REPORT INFORMATION
  Report Type: 
  Country: None (occurrence: None)
  Receive Date: 20100714
  Receipt Date: 20070724
  Transmission Date: 20110219
  Serious: No
  Sender: FDA-Public Use
  Company Number: US-PFIZER INC-2007063004

PATIENT
  Sex: Female
  Weight: 71.8 kg

DRUGS (6)
  1. CHANTIX [Suspect]
     Indication: SMOKING CESSATION THERAPY
     Dates: start: 20070101
  2. LASIX [Concomitant]
  3. POTASSIUM CHLORIDE [Concomitant]
  4. CENTRUM SILVER [Concomitant]
  5. CALCIUM WITH VITAMIN D [Concomitant]
  6. ALBUTEROL [Concomitant]

REACTIONS (2)
  - NAUSEA [None]
  - VOMITING [None]
